FAERS Safety Report 6558827-6 (Version None)
Quarter: 2010Q1

REPORT INFORMATION
  Report Type: 
  Country: None (occurrence: None)
  Receive Date: 20100129
  Receipt Date: 20100118
  Transmission Date: 20100710
  Serious: Yes (Hospitalization, Other)
  Sender: FDA-Public Use
  Company Number: PHHY2010FR03048

PATIENT
  Age: 15 Year
  Sex: Male

DRUGS (4)
  1. RITALIN [Suspect]
     Indication: ATTENTION DEFICIT/HYPERACTIVITY DISORDER
     Dosage: UNK
     Route: 048
     Dates: start: 20080901, end: 20091205
  2. ERYTHROMYCIN [Suspect]
     Dosage: UNK
     Route: 048
     Dates: start: 20091101, end: 20091202
  3. CLAMOXYL [Concomitant]
     Indication: PERTUSSIS
     Dosage: UNK
     Route: 048
     Dates: start: 20091101, end: 20091101
  4. AUGMENTIN [Concomitant]
     Indication: PERTUSSIS
     Dosage: UNK
     Route: 048
     Dates: start: 20091101, end: 20091101

REACTIONS (5)
  - ABDOMINAL PAIN UPPER [None]
  - CYTOLYTIC HEPATITIS [None]
  - NAUSEA [None]
  - PERTUSSIS [None]
  - VOMITING [None]
